FAERS Safety Report 6638514-6 (Version None)
Quarter: 2010Q1

REPORT INFORMATION
  Report Type: 
  Country: None (occurrence: None)
  Receive Date: 20100316
  Receipt Date: 20100316
  Transmission Date: 20100710
  Serious: Yes (Other)
  Sender: FDA-Public Use
  Company Number: None

PATIENT
  Age: 31 Year
  Sex: Male
  Weight: 88.4514 kg

DRUGS (1)
  1. ZICAM COLD REMEDY NASAL GEL REGULAR ZICAM [Suspect]
     Indication: NASOPHARYNGITIS
     Dosage: 1 SPRAY, EACH NOSTRIL ONCE NASAL
     Route: 045
     Dates: start: 20100213, end: 20100213

REACTIONS (3)
  - HYPOGEUSIA [None]
  - NASAL DISCOMFORT [None]
  - PAROSMIA [None]
